FAERS Safety Report 10141540 (Version 1)
Quarter: 2014Q2

REPORT INFORMATION
  Report Type: Spontaneous
  Country: CO (occurrence: CO)
  Receive Date: 20140429
  Receipt Date: 20140429
  Transmission Date: 20141212
  Serious: Yes (Other)
  Sender: FDA-Public Use
  Company Number: CO-GLAXOSMITHKLINE-A1071067A

PATIENT
  Sex: Female
  Weight: 74 kg

DRUGS (5)
  1. LAMICTAL [Suspect]
     Indication: POST-TRAUMATIC STRESS DISORDER
     Dosage: 100MG UNKNOWN
     Route: 048
  2. EFEROX [Suspect]
     Indication: PRODUCT USED FOR UNKNOWN INDICATION
     Route: 065
  3. ZYPREXA [Suspect]
     Indication: PRODUCT USED FOR UNKNOWN INDICATION
     Route: 065
  4. RIVOTRIL [Concomitant]
  5. XANAX [Concomitant]

REACTIONS (3)
  - Liver injury [Not Recovered/Not Resolved]
  - Platelet count decreased [Not Recovered/Not Resolved]
  - Blood disorder [Not Recovered/Not Resolved]
